FAERS Safety Report 9713326 (Version 1)
Quarter: 2013Q4

REPORT INFORMATION
  Report Type: Spontaneous
  Country: DE (occurrence: DE)
  Receive Date: 20131126
  Receipt Date: 20131126
  Transmission Date: 20140711
  Serious: Yes (Death)
  Sender: FDA-Public Use
  Company Number: DE-CELGENEUS-062-21660-13112435

PATIENT
  Age: 47 Year
  Sex: Female
  Weight: 56 kg

DRUGS (2)
  1. ABRAXANE [Suspect]
     Indication: PANCREATIC CARCINOMA METASTATIC
     Route: 065
     Dates: start: 201304, end: 201308
  2. GEMCITABINE [Concomitant]
     Indication: PANCREATIC CARCINOMA METASTATIC
     Route: 065
     Dates: start: 201304

REACTIONS (3)
  - Death [Fatal]
  - Alopecia [Unknown]
  - Nausea [Unknown]
